FAERS Safety Report 20721660 (Version 1)
Quarter: 2022Q2

REPORT INFORMATION
  Report Type: Spontaneous
  Country: US (occurrence: US)
  Receive Date: 20220418
  Receipt Date: 20220418
  Transmission Date: 20220721
  Serious: No
  Sender: FDA-Public Use
  Company Number: US-EVOKE PHARMA, INC.-2022EVO000016

PATIENT
  Sex: Female

DRUGS (2)
  1. GIMOTI [Suspect]
     Active Substance: METOCLOPRAMIDE HYDROCHLORIDE
     Indication: Impaired gastric emptying
     Dosage: UNK
     Route: 045
  2. REGLAN                             /00041901/ [Concomitant]
     Indication: Impaired gastric emptying
     Dosage: UNK
     Route: 048

REACTIONS (1)
  - Muscle twitching [Not Recovered/Not Resolved]
